FAERS Safety Report 10166971 (Version 2)
Quarter: 2014Q4

REPORT INFORMATION
  Report Type: Spontaneous
  Country: CO (occurrence: None)
  Receive Date: 20140508
  Receipt Date: 20141029
  Transmission Date: 20150528
  Serious: Yes (Other)
  Sender: FDA-Public Use
  Company Number: 2014-19459

PATIENT
  Sex: Female

DRUGS (1)
  1. EYLEA [Suspect]
     Active Substance: AFLIBERCEPT
     Indication: AGE-RELATED MACULAR DEGENERATION
     Dosage: THREE APPLICATIONS OF EYLIA
     Dates: start: 20140227

REACTIONS (4)
  - Retinal vein occlusion [None]
  - General physical health deterioration [None]
  - Vision blurred [None]
  - Vitreous floaters [None]

NARRATIVE: CASE EVENT DATE: 2014
